FAERS Safety Report 19496034 (Version 1)
Quarter: 2021Q3

REPORT INFORMATION
  Report Type: Spontaneous
  Country: US (occurrence: US)
  Receive Date: 20210701
  Receipt Date: 20210701
  Transmission Date: 20211014
  Serious: Yes (Hospitalization, Other)
  Sender: FDA-Public Use
  Company Number: None

PATIENT
  Age: 57 Year
  Sex: Female
  Weight: 78 kg

DRUGS (1)
  1. COSENTYX [Suspect]
     Active Substance: SECUKINUMAB
     Indication: PSORIASIS
     Dosage: OTHER FREQUENCY:EVERY 4 WEEKS;?
     Route: 058
     Dates: start: 20200207, end: 20210403

REACTIONS (6)
  - Abdominal pain upper [None]
  - Flatulence [None]
  - Abdominal pain [None]
  - Diarrhoea [None]
  - Crohn^s disease [None]
  - Therapy interrupted [None]

NARRATIVE: CASE EVENT DATE: 20210419
